FAERS Safety Report 4741449-7 (Version None)
Quarter: 2005Q3

REPORT INFORMATION
  Report Type: 
  Country: None (occurrence: None)
  Receive Date: 20050808
  Receipt Date: 20050728
  Transmission Date: 20060218
  Serious: Yes (Other)
  Sender: FDA-Public Use
  Company Number: 2005098103

PATIENT
  Sex: Female
  Weight: 63.5036 kg

DRUGS (5)
  1. TIKOSYN [Suspect]
     Indication: ATRIAL FIBRILLATION
     Dosage: 0.25 MCG, BID INTERVAL: EVERY DAY, ORAL
     Route: 048
  2. COUMADIN [Concomitant]
  3. TOPROL (METOPROLOL) [Concomitant]
  4. HERBAL PREPARATION (HERBAL PREPARATION) [Concomitant]
  5. UNISOM [Concomitant]

REACTIONS (9)
  - ABDOMINAL DISTENSION [None]
  - ABDOMINAL PAIN [None]
  - ANXIETY [None]
  - ATRIAL FIBRILLATION [None]
  - BLOOD PRESSURE INCREASED [None]
  - DIAPHRAGMATIC DISORDER [None]
  - DIZZINESS [None]
  - DYSPNOEA [None]
  - GASTROINTESTINAL PAIN [None]
